FAERS Safety Report 18545435 (Version 1)
Quarter: 2020Q4

REPORT INFORMATION
  Report Type: Spontaneous
  Country: US (occurrence: US)
  Receive Date: 20201125
  Receipt Date: 20201125
  Transmission Date: 20210114
  Serious: Yes (Hospitalization)
  Sender: FDA-Public Use
  Company Number: None

PATIENT
  Age: 6 Year
  Sex: Male
  Weight: 30.8 kg

DRUGS (7)
  1. VINCRISTINE SULFATE. [Suspect]
     Active Substance: VINCRISTINE SULFATE
     Dates: end: 20200812
  2. GLEEVEC [Suspect]
     Active Substance: IMATINIB MESYLATE
     Dates: end: 20200813
  3. DEXAMETHASONE. [Suspect]
     Active Substance: DEXAMETHASONE
     Dates: end: 20200812
  4. ZINECARD [Suspect]
     Active Substance: DEXRAZOXANE HYDROCHLORIDE
     Dates: end: 20200812
  5. DOXORUBICIN HYDROCHLORIDE. [Suspect]
     Active Substance: DOXORUBICIN HYDROCHLORIDE
     Dates: end: 20200812
  6. ONCASPAR [Suspect]
     Active Substance: PEGASPARGASE
     Dates: end: 20200729
  7. METHOTREXATE. [Suspect]
     Active Substance: METHOTREXATE
     Dates: end: 20200723

REACTIONS (21)
  - Ejection fraction decreased [None]
  - Enterovirus infection [None]
  - Oral pain [None]
  - Oropharyngeal plaque [None]
  - Eye swelling [None]
  - Septic shock [None]
  - Sinusitis [None]
  - Rhinovirus infection [None]
  - Streptococcus test positive [None]
  - Oral mucosal erythema [None]
  - Pancytopenia [None]
  - Pulmonary mass [None]
  - Palatal oedema [None]
  - Facial pain [None]
  - Cellulitis orbital [None]
  - Febrile neutropenia [None]
  - Therapy interrupted [None]
  - Ventricular extrasystoles [None]
  - Clostridium difficile colitis [None]
  - Productive cough [None]
  - Fungal infection [None]

NARRATIVE: CASE EVENT DATE: 20200814
